FAERS Safety Report 9568837 (Version 1)
Quarter: 2013Q3

REPORT INFORMATION
  Report Type: Spontaneous
  Country: US (occurrence: US)
  Receive Date: 20130930
  Receipt Date: 20130930
  Transmission Date: 20140515
  Serious: No
  Sender: FDA-Public Use
  Company Number: US-AMGEN-USASP2013060745

PATIENT
  Age: 55 Year
  Sex: Female
  Weight: 70.3 kg

DRUGS (11)
  1. ENBREL [Suspect]
     Indication: PRODUCT USED FOR UNKNOWN INDICATION
     Dosage: 25 MG, 2 TIMES/WK
     Route: 058
  2. SINGULAIR [Concomitant]
     Dosage: 10 MG, UNK
  3. CODEINE SULFATE [Concomitant]
     Dosage: 15 MG, UNK
  4. TRAMADOL HCL [Concomitant]
     Dosage: 50 MG, UNK
  5. NAPROXEN [Concomitant]
     Dosage: 250 MG, UNK
  6. OMEPRAZOLE [Concomitant]
     Dosage: 20 MG, UNK
  7. ADVAIR [Concomitant]
     Dosage: 100/50, UNK
  8. AMITRIPTYLIN [Concomitant]
     Dosage: 75 MG, UNK
  9. EXCEDRIN                           /00110301/ [Concomitant]
     Dosage: UNK
  10. PROAIR HFA [Concomitant]
     Dosage: UNK
  11. VITAMIN D                          /00107901/ [Concomitant]
     Dosage: 8000/ML UNK, UNK

REACTIONS (2)
  - Drug effect incomplete [Unknown]
  - Back disorder [Unknown]
